FAERS Safety Report 7294078-8 (Version None)
Quarter: 2011Q1

REPORT INFORMATION
  Report Type: 
  Country: None (occurrence: None)
  Receive Date: 20110215
  Receipt Date: 20110210
  Transmission Date: 20110831
  Serious: Yes (Other)
  Sender: FDA-Public Use
  Company Number: AU-B.I. PHARMACEUTICALS,INC./RIDGEFIELD-2011-AU-00065AU

PATIENT
  Age: 77 Year
  Sex: Male

DRUGS (1)
  1. MOBIC [Suspect]

REACTIONS (1)
  - CARDIAC FAILURE [None]
